FAERS Safety Report 5817901-X (Version None)
Quarter: 2008Q3

REPORT INFORMATION
  Report Type: 
  Country: None (occurrence: None)
  Receive Date: 20080722
  Receipt Date: 20070625
  Transmission Date: 20090109
  Serious: No
  Sender: FDA-Public Use
  Company Number: US-BAYER-US-2007-023493

PATIENT
  Age: 46 Year
  Sex: Female
  Weight: 66 kg

DRUGS (1)
  1. MAGNEVIST [Suspect]
     Indication: NUCLEAR MAGNETIC RESONANCE IMAGING
     Dosage: UNIT DOSE: 13 ML
     Route: 042
     Dates: start: 20070622, end: 20070622

REACTIONS (7)
  - ANXIETY [None]
  - CHEST DISCOMFORT [None]
  - ERYTHEMA [None]
  - EYE SWELLING [None]
  - ORAL PRURITUS [None]
  - THROAT IRRITATION [None]
  - URTICARIA [None]
